FAERS Safety Report 4608571-7 (Version None)
Quarter: 2005Q1

REPORT INFORMATION
  Report Type: 
  Country: None (occurrence: None)
  Receive Date: 20050311
  Receipt Date: 20050311
  Transmission Date: 20050727
  Serious: Yes (Hospitalization)
  Sender: FDA-Public Use
  Company Number: None

PATIENT
  Age: 87 Year
  Sex: Female
  Weight: 62.7 kg

DRUGS (11)
  1. LEVOFLOXACIN [Suspect]
     Indication: PNEUMONIA
     Dosage: 750 MG ONCE INTRAVENOUS
     Route: 042
     Dates: start: 20041129, end: 20041129
  2. ASPIRIN [Concomitant]
  3. PLAVIX [Concomitant]
  4. NEURONTIN [Concomitant]
  5. METOPROLOL [Concomitant]
  6. SERTRALINE HCL [Concomitant]
  7. NITROGLYN 2% OINTMENT [Concomitant]
  8. CELEBREX [Concomitant]
  9. ISOPTO TEARS [Concomitant]
  10. LASIX [Concomitant]
  11. COZAAR [Concomitant]

REACTIONS (3)
  - DRUG HYPERSENSITIVITY [None]
  - ERYTHEMA [None]
  - HYPOTENSION [None]
